FAERS Safety Report 8323235-4 (Version None)
Quarter: 2012Q2

REPORT INFORMATION
  Report Type: 
  Country: None (occurrence: None)
  Receive Date: 20120430
  Receipt Date: 20120425
  Transmission Date: 20120825
  Serious: Yes (Disabling, Other)
  Sender: FDA-Public Use
  Company Number: US-PFIZER INC-2012103123

PATIENT
  Sex: Female
  Weight: 82.1 kg

DRUGS (4)
  1. PREDNISONE [Concomitant]
     Dosage: UNK
  2. TEMAZEPAM [Concomitant]
     Dosage: UNK
  3. NORCO [Concomitant]
     Dosage: UNK
  4. LYRICA [Suspect]
     Indication: SCIATIC NERVE INJURY
     Dosage: 100 MG, 3X/DAY
     Route: 048
     Dates: start: 20090101, end: 20090101

REACTIONS (2)
  - SCIATIC NERVE NEUROPATHY [None]
  - SCAR [None]
